FAERS Safety Report 5963808-7 (Version None)
Quarter: 2008Q4

REPORT INFORMATION
  Report Type: 
  Country: None (occurrence: None)
  Receive Date: 20081121
  Receipt Date: 20081121
  Transmission Date: 20090506
  Serious: Yes (Death)
  Sender: FDA-Public Use
  Company Number: None

PATIENT
  Sex: Female
  Weight: 0.58 kg

DRUGS (20)
  1. MORPHINE [Suspect]
     Indication: PAIN
     Dosage: 0.005 MG/KG/HOUR
     Dates: start: 20081006, end: 20081021
  2. INULIN [Suspect]
     Indication: GLOMERULAR FILTRATION RATE
     Dosage: 0.6 ML/KG/HOUR
     Dates: start: 20081006, end: 20081010
  3. ERYTHROMYCIN [Concomitant]
  4. GENTAMICIN [Concomitant]
  5. AMPICILLIN [Concomitant]
  6. LASIX [Concomitant]
  7. SODIUM BICARBONATE [Concomitant]
  8. HYDROCORTISONE [Concomitant]
  9. GLYCERIN [Concomitant]
  10. ALBUTEROL [Concomitant]
  11. VANCOMYCIN [Concomitant]
  12. FLUCONAZOLE [Concomitant]
  13. CEFOTAXIME SODIUM [Concomitant]
  14. OXACILLIN [Concomitant]
  15. ZITHROMAX [Concomitant]
  16. CAFFEINE [Concomitant]
  17. MEROPENEM [Concomitant]
  18. ALBUMIN (HUMAN) [Concomitant]
  19. DOBUTAMINE HCL [Concomitant]
  20. DOPAMINE HCL [Concomitant]

REACTIONS (4)
  - ABDOMINAL DISTENSION [None]
  - INTESTINAL ISCHAEMIA [None]
  - NECROTISING COLITIS [None]
  - RESPIRATORY FAILURE [None]
